FAERS Safety Report 18152928 (Version 1)
Quarter: 2020Q3

REPORT INFORMATION
  Report Type: Spontaneous
  Country: JP (occurrence: JP)
  Receive Date: 20200814
  Receipt Date: 20200814
  Transmission Date: 20201103
  Serious: Yes (Other)
  Sender: FDA-Public Use
  Company Number: JP-ANIPHARMA-2020-JP-000291

PATIENT
  Sex: Male

DRUGS (3)
  1. CANDESARTAN CILEXETIL. [Suspect]
     Active Substance: CANDESARTAN CILEXETIL
     Indication: PRODUCT USED FOR UNKNOWN INDICATION
     Route: 048
  2. ETIZOLAM [Suspect]
     Active Substance: ETIZOLAM
     Route: 065
  3. SORENTMIN (BROTIZOLAM) [Suspect]
     Active Substance: BROTIZOLAM
     Route: 065

REACTIONS (4)
  - Rash macular [Unknown]
  - Vascular fragility [Unknown]
  - Contusion [Unknown]
  - Internal haemorrhage [Unknown]
